FAERS Safety Report 4647894-2 (Version None)
Quarter: 2005Q2

REPORT INFORMATION
  Report Type: 
  Country: None (occurrence: None)
  Receive Date: 20050426
  Receipt Date: 20050415
  Transmission Date: 20051028
  Serious: Yes (Hospitalization)
  Sender: FDA-Public Use
  Company Number: 390

PATIENT
  Age: 65 Year
  Sex: Female

DRUGS (15)
  1. AMIODARONE HCL [Suspect]
     Indication: VENTRICULAR FIBRILLATION
     Dosage: 200 MG QD PO
     Route: 048
  2. FOLBY [Concomitant]
  3. TOPROL-XL [Concomitant]
  4. COZAAR [Concomitant]
  5. PHENOPARBITAL TID [Concomitant]
  6. DILANTIN [Concomitant]
  7. OMEPRAZOLE [Concomitant]
  8. ESTRADIOL [Concomitant]
  9. TRIAM/HCTZ [Concomitant]
  10. CELEXA [Concomitant]
  11. VALIUM PRN [Concomitant]
  12. TEMAZEPAM [Concomitant]
  13. METHOCARBAMOL [Concomitant]
  14. HYDROCODONE BITARTRATE [Concomitant]
  15. BEXTRA [Concomitant]

REACTIONS (9)
  - ALOPECIA [None]
  - ASTHENIA [None]
  - DIZZINESS [None]
  - HYPERTHYROIDISM [None]
  - LOSS OF CONSCIOUSNESS [None]
  - MUSCLE SPASMS [None]
  - PAIN IN EXTREMITY [None]
  - ULCER HAEMORRHAGE [None]
  - VISION BLURRED [None]
